FAERS Safety Report 25265667 (Version 1)
Quarter: 2025Q2

REPORT INFORMATION
  Report Type: Spontaneous
  Country: US (occurrence: US)
  Receive Date: 20250503
  Receipt Date: 20250503
  Transmission Date: 20250716
  Serious: Yes (Other)
  Sender: MACLEODS
  Company Number: US-MACLEODS PHARMA-MAC2025052811

PATIENT

DRUGS (1)
  1. ARIPIPRAZOLE [Suspect]
     Active Substance: ARIPIPRAZOLE
     Indication: Tourette^s disorder
     Route: 048

REACTIONS (10)
  - Hallucination, visual [Unknown]
  - Hallucination, auditory [Unknown]
  - Laryngitis [Unknown]
  - Abnormal behaviour [Unknown]
  - Mental disorder [Unknown]
  - Disorganised speech [Unknown]
  - Confusional state [Unknown]
  - Dry mouth [Unknown]
  - Gambling disorder [Unknown]
  - Expired product administered [Unknown]

NARRATIVE: CASE EVENT DATE: 20210101
